FAERS Safety Report 9942853 (Version 4)
Quarter: 2014Q2

REPORT INFORMATION
  Report Type: Spontaneous
  Country: JP (occurrence: JP)
  Receive Date: 20140303
  Receipt Date: 20140509
  Transmission Date: 20141212
  Serious: Yes (Death)
  Sender: FDA-Public Use
  Company Number: JP-BAXTER-2014BAX009833

PATIENT
  Age: 67 Year
  Sex: Male
  Weight: 57.8 kg

DRUGS (17)
  1. FEIBA FOR INJECTION 1000 [Suspect]
     Indication: HAEMOSTASIS
     Route: 042
     Dates: start: 20140205, end: 20140205
  2. FEIBA FOR INJECTION 1000 [Suspect]
     Route: 042
     Dates: start: 20140205, end: 20140209
  3. FEIBA FOR INJECTION 1000 [Suspect]
     Route: 042
     Dates: start: 20140210, end: 20140210
  4. NOVOSEVEN HI [Suspect]
     Indication: HAEMOSTASIS
     Dosage: 1-6 TIMES A DAY
     Route: 042
     Dates: start: 20140124, end: 20140205
  5. NOVOSEVEN HI [Suspect]
     Dosage: 1-6 TIMES A DAY
     Route: 042
     Dates: start: 20140210, end: 20140217
  6. NOVOSEVEN HI [Suspect]
     Route: 042
     Dates: start: 20140116, end: 20140117
  7. LYRICA [Suspect]
     Indication: PAIN
     Route: 048
     Dates: start: 20131109, end: 20131109
  8. LYRICA [Suspect]
     Route: 048
     Dates: start: 20131110, end: 20140210
  9. ADVATE 2000 [Concomitant]
     Indication: GASTROINTESTINAL HAEMORRHAGE
     Route: 042
     Dates: start: 20130924, end: 20130924
  10. ADVATE 2000 [Concomitant]
     Route: 042
     Dates: start: 20131025, end: 20131025
  11. ADVATE 1000 [Concomitant]
     Indication: GASTROINTESTINAL HAEMORRHAGE
     Route: 042
     Dates: start: 20130924, end: 20130924
  12. ADVATE 1000 [Concomitant]
     Route: 042
     Dates: start: 20130925, end: 20130925
  13. ADVATE 1000 [Concomitant]
     Route: 042
     Dates: start: 20130925, end: 20130929
  14. ADVATE 1000 [Concomitant]
     Route: 042
     Dates: start: 20131025, end: 20131025
  15. ADVATE 500 [Concomitant]
     Indication: GASTROINTESTINAL HAEMORRHAGE
     Route: 042
     Dates: start: 20130930, end: 20131008
  16. ADVATE 500 [Concomitant]
     Route: 042
     Dates: start: 20130930, end: 20131008
  17. PACKED RED BLOOD CELLS [Concomitant]
     Indication: HAEMORRHAGE
     Dosage: 2 UNITS
     Route: 042
     Dates: start: 20140205, end: 20140205

REACTIONS (1)
  - Interstitial lung disease [Fatal]
